FAERS Safety Report 6207602-0 (Version None)
Quarter: 2009Q2

REPORT INFORMATION
  Report Type: 
  Country: None (occurrence: None)
  Receive Date: 20090528
  Receipt Date: 20090519
  Transmission Date: 20091009
  Serious: Yes (Hospitalization, Other)
  Sender: FDA-Public Use
  Company Number: US-AMGEN-QUU347858

PATIENT
  Sex: Female

DRUGS (1)
  1. ENBREL [Suspect]
     Indication: PSORIASIS
     Route: 058
     Dates: start: 20050330

REACTIONS (6)
  - CARDIAC FAILURE CONGESTIVE [None]
  - KIDNEY INFECTION [None]
  - NEPHROLITHIASIS [None]
  - PSORIASIS [None]
  - SEPTIC SHOCK [None]
  - SLEEP APNOEA SYNDROME [None]
